FAERS Safety Report 10924203 (Version 1)
Quarter: 2015Q1

REPORT INFORMATION
  Report Type: Spontaneous
  Country: US (occurrence: None)
  Receive Date: 20150316
  Receipt Date: 20150316
  Transmission Date: 20150721
  Serious: Yes (Other)
  Sender: FDA-Public Use
  Company Number: None

PATIENT
  Age: 67 Year
  Sex: Male
  Weight: 95.5 kg

DRUGS (1)
  1. FLUORESCEIN [Suspect]
     Active Substance: FLUORESCEIN
     Indication: EYE DISORDER
     Dates: start: 20150304, end: 20150304

REACTIONS (7)
  - Dyskinesia [None]
  - Hypotension [None]
  - Hyperhidrosis [None]
  - Dizziness [None]
  - Nystagmus [None]
  - Skin discolouration [None]
  - Presyncope [None]

NARRATIVE: CASE EVENT DATE: 20150304
